FAERS Safety Report 16788824 (Version 2)
Quarter: 2019Q3

REPORT INFORMATION
  Report Type: Report from Study
  Country: BR (occurrence: BR)
  Receive Date: 20190910
  Receipt Date: 20190924
  Transmission Date: 20191005
  Serious: Yes (Other)
  Sender: FDA-Public Use
  Company Number: BR-ROCHE-2402376

PATIENT
  Sex: Male
  Weight: 55 kg

DRUGS (3)
  1. XOLAIR [Suspect]
     Active Substance: OMALIZUMAB
     Dosage: UNK, EVERY 6 WEEKS
     Route: 058
     Dates: start: 201805
  2. XOLAIR [Suspect]
     Active Substance: OMALIZUMAB
     Indication: URTICARIA CHOLINERGIC
     Route: 058
     Dates: start: 20170919
  3. XOLAIR [Suspect]
     Active Substance: OMALIZUMAB
     Dosage: UNK, EVERY 6 WEEKS
     Route: 058
     Dates: start: 201907

REACTIONS (6)
  - Psychological trauma [Unknown]
  - Pruritus generalised [Recovered/Resolved]
  - Inappropriate schedule of product administration [Unknown]
  - Urticaria [Recovered/Resolved]
  - Urticaria cholinergic [Recovered/Resolved]
  - Pain [Recovered/Resolved]
